FAERS Safety Report 6499242-3 (Version None)
Quarter: 2009Q4

REPORT INFORMATION
  Report Type: 
  Country: None (occurrence: None)
  Receive Date: 20091215
  Receipt Date: 20091210
  Transmission Date: 20100525
  Serious: Yes (Other)
  Sender: FDA-Public Use
  Company Number: BR-BAYER-200925170LA

PATIENT
  Age: 26 Year
  Sex: Male
  Weight: 62 kg

DRUGS (3)
  1. AVELOX [Suspect]
     Indication: DRUG USE FOR UNKNOWN INDICATION
     Dosage: TOTAL DAILY DOSE: 400 MG  UNIT DOSE: 400 MG
     Route: 048
     Dates: start: 20091209
  2. PREDNISOLONE SODIUM PHOSPHATE [Concomitant]
     Indication: ANTIALLERGIC THERAPY
     Dosage: TOTAL DAILY DOSE: 6 MG  UNIT DOSE: 3 MG
     Route: 048
     Dates: start: 20091209
  3. DESLORATADINE [Concomitant]
     Indication: COUGH
     Dosage: TOTAL DAILY DOSE: 5 MG  UNIT DOSE: 5 MG
     Route: 048
     Dates: start: 20091209

REACTIONS (2)
  - HAEMATEMESIS [None]
  - VOMITING [None]
